FAERS Safety Report 8455878-1 (Version None)
Quarter: 2012Q2

REPORT INFORMATION
  Report Type: 
  Country: None (occurrence: None)
  Receive Date: 20120621
  Receipt Date: 20120611
  Transmission Date: 20120825
  Serious: Yes (Other)
  Sender: FDA-Public Use
  Company Number: US-ELI_LILLY_AND_COMPANY-US201206004292

PATIENT
  Age: 82 Year
  Sex: Female

DRUGS (2)
  1. HUMALOG MIX 75/25 [Suspect]
     Indication: DIABETES MELLITUS
     Dosage: 50 U, EACH MORNING
  2. HUMALOG MIX 75/25 [Suspect]
     Dosage: 40 U, EACH EVENING
     Dates: start: 20100101

REACTIONS (4)
  - ATRIAL FIBRILLATION [None]
  - OEDEMA PERIPHERAL [None]
  - DRUG PRESCRIBING ERROR [None]
  - CARDIAC FAILURE CONGESTIVE [None]
